FAERS Safety Report 25368485 (Version 1)
Quarter: 2025Q2

REPORT INFORMATION
  Report Type: Spontaneous
  Country: US (occurrence: None)
  Receive Date: 20250527
  Receipt Date: 20250527
  Transmission Date: 20250717
  Serious: Yes (Hospitalization, Disabling)
  Sender: FDA-CTU
  Company Number: None

PATIENT
  Sex: Male
  Weight: 108 kg

DRUGS (2)
  1. RISPERIDONE [Suspect]
     Active Substance: RISPERIDONE
     Indication: Schizoaffective disorder
     Dosage: FREQUENCY : DAILY;?
     Route: 048
  2. PHYTOSTEROLS [Concomitant]
     Active Substance: PHYTOSTEROLS

REACTIONS (7)
  - Hormone level abnormal [None]
  - Blood prolactin increased [None]
  - Fatigue [None]
  - Sexual dysfunction [None]
  - Erectile dysfunction [None]
  - Libido decreased [None]
  - Blood testosterone decreased [None]
